FAERS Safety Report 14563586 (Version 3)
Quarter: 2018Q1

REPORT INFORMATION
  Report Type: Report from Study
  Country: US (occurrence: US)
  Receive Date: 20180222
  Receipt Date: 20180316
  Transmission Date: 20180509
  Serious: Yes (Life-Threatening)
  Sender: FDA-Public Use
  Company Number: PHEH2018US007061

PATIENT
  Sex: Female

DRUGS (1)
  1. GILENYA [Suspect]
     Active Substance: FINGOLIMOD HYDROCHLORIDE
     Indication: MULTIPLE SCLEROSIS
     Dosage: 0.5 MG, QD
     Route: 048
     Dates: start: 20180119

REACTIONS (6)
  - Crying [Unknown]
  - Sinusitis [Unknown]
  - Suicidal ideation [Unknown]
  - Bronchitis [Unknown]
  - Abdominal discomfort [Unknown]
  - Feeling abnormal [Unknown]
